FAERS Safety Report 13603415 (Version 1)
Quarter: 2017Q2

REPORT INFORMATION
  Report Type: Spontaneous
  Country: US (occurrence: US)
  Receive Date: 20170601
  Receipt Date: 20170601
  Transmission Date: 20170912
  Serious: No
  Sender: FDA-Public Use
  Company Number: US-OTSUKA-2016_023414

PATIENT
  Age: 82 Year
  Sex: Female

DRUGS (2)
  1. SAMSCA [Suspect]
     Dosage: UNK
     Route: 065
     Dates: start: 201609
  2. SAMSCA [Suspect]
     Indication: HYPONATRAEMIA
     Dosage: 7.5 MG (ONCE), SINGLE
     Route: 065
     Dates: start: 20160923, end: 20160923

REACTIONS (2)
  - Off label use [Unknown]
  - Wrong technique in product usage process [Unknown]

NARRATIVE: CASE EVENT DATE: 20160923
